FAERS Safety Report 12626881 (Version 1)
Quarter: 2016Q3

REPORT INFORMATION
  Report Type: Report from Study
  Country: US (occurrence: US)
  Receive Date: 20160805
  Receipt Date: 20160805
  Transmission Date: 20161109
  Serious: Yes (Hospitalization, Other)
  Sender: FDA-Public Use
  Company Number: US-TAKEDA-2016TUS013530

PATIENT
  Age: 62 Year
  Sex: Female

DRUGS (2)
  1. PIOGLITAZONE. [Suspect]
     Active Substance: PIOGLITAZONE
     Indication: PRODUCT USED FOR UNKNOWN INDICATION
     Dosage: UNK
     Route: 065
  2. PIOGLITAZONE. [Suspect]
     Active Substance: PIOGLITAZONE
     Dosage: 45 MG, UNK
     Route: 065

REACTIONS (5)
  - Renal impairment [Unknown]
  - Malaise [Unknown]
  - Asthenia [Unknown]
  - Hospitalisation [Unknown]
  - Dehydration [Unknown]

NARRATIVE: CASE EVENT DATE: 20160725
